FAERS Safety Report 20737159 (Version 1)
Quarter: 2022Q2

REPORT INFORMATION
  Report Type: Spontaneous
  Country: US (occurrence: US)
  Receive Date: 20220421
  Receipt Date: 20220421
  Transmission Date: 20220721
  Serious: No
  Sender: FDA-Public Use
  Company Number: US-Vifor (International) Inc.-VIT-2022-02300

PATIENT
  Age: 41 Year
  Sex: Male

DRUGS (2)
  1. VELTASSA [Suspect]
     Active Substance: PATIROMER
     Indication: Hyperkalaemia
     Route: 048
     Dates: start: 202106
  2. VELTASSA [Suspect]
     Active Substance: PATIROMER
     Dosage: 2-3 TIMES PER WEEK
     Route: 048

REACTIONS (2)
  - Product physical issue [Unknown]
  - No adverse event [Unknown]
